FAERS Safety Report 6450369-1 (Version None)
Quarter: 2009Q4

REPORT INFORMATION
  Report Type: 
  Country: None (occurrence: None)
  Receive Date: 20091123
  Receipt Date: 20091112
  Transmission Date: 20100525
  Serious: Yes (Other)
  Sender: FDA-Public Use
  Company Number: US-AMGEN-KDL373314

PATIENT
  Sex: Female
  Weight: 74.9 kg

DRUGS (6)
  1. ENBREL [Suspect]
     Indication: PSORIASIS
     Route: 058
     Dates: start: 20090211, end: 20091026
  2. VICODIN [Concomitant]
  3. LEVOXYL [Concomitant]
  4. DIAZEPAM [Concomitant]
  5. PAXIL [Concomitant]
  6. VYTORIN [Concomitant]

REACTIONS (8)
  - ALOPECIA [None]
  - DRY EYE [None]
  - EOSINOPHIL COUNT INCREASED [None]
  - ERYTHEMA [None]
  - EYE SWELLING [None]
  - HEADACHE [None]
  - LUPUS-LIKE SYNDROME [None]
  - VISION BLURRED [None]
